FAERS Safety Report 26057223 (Version 1)
Quarter: 2025Q4

REPORT INFORMATION
  Report Type: Spontaneous
  Country: US (occurrence: US)
  Receive Date: 20251118
  Receipt Date: 20251118
  Transmission Date: 20260117
  Serious: No
  Sender: AMNEAL
  Company Number: US-AMNEAL PHARMACEUTICALS-2025-AMRX-02622

PATIENT
  Age: 17 Year

DRUGS (1)
  1. ISOTRETINOIN [Suspect]
     Active Substance: ISOTRETINOIN
     Indication: Product used for unknown indication
     Dosage: 30 MILLIGRAM, 1 CAPSULES, 1X/DAY
     Route: 065
     Dates: start: 20250201

REACTIONS (5)
  - Oropharyngeal pain [Recovered/Resolved]
  - Nasal congestion [Recovered/Resolved]
  - Swollen tongue [Recovered/Resolved]
  - Epistaxis [Unknown]
  - Lip dry [Unknown]

NARRATIVE: CASE EVENT DATE: 20250623
